FAERS Safety Report 6249174-0 (Version None)
Quarter: 2009Q2

REPORT INFORMATION
  Report Type: 
  Country: None (occurrence: None)
  Receive Date: 20090624
  Receipt Date: 20090624
  Transmission Date: 20091009
  Serious: Yes (Hospitalization, Other)
  Sender: FDA-Public Use
  Company Number: None

PATIENT
  Sex: Female
  Weight: 38 kg

DRUGS (1)
  1. DEXAMETHASONE TAB [Suspect]
     Indication: ACUTE LYMPHOCYTIC LEUKAEMIA
     Dosage: 2.5 MG TID PO
     Route: 048
     Dates: start: 20090213, end: 20090329

REACTIONS (5)
  - BLOOD BILIRUBIN INCREASED [None]
  - GASTRIC ULCER [None]
  - GASTRITIS [None]
  - GASTROINTESTINAL HAEMORRHAGE [None]
  - HAEMOGLOBIN ABNORMAL [None]
